FAERS Safety Report 16151453 (Version 7)
Quarter: 2019Q3

REPORT INFORMATION
  Report Type: Spontaneous
  Country: CA (occurrence: CA)
  Receive Date: 20190403
  Receipt Date: 20190919
  Transmission Date: 20191004
  Serious: Yes (Other)
  Sender: FDA-Public Use
  Company Number: CA-CELLTRION INC.-2019CA020000

PATIENT

DRUGS (9)
  1. INFLECTRA [Suspect]
     Active Substance: INFLIXIMAB-DYYB
     Dosage: 400 MG, EVERY 0, 2, 6 AND THEN EVERY 8 WEEKS
     Route: 042
     Dates: start: 20190622
  2. PREDNISONE. [Concomitant]
     Active Substance: PREDNISONE
     Dosage: 40 MG, 1X/DAY (TAPERING)
     Route: 048
     Dates: start: 20190201
  3. IMURAN [Concomitant]
     Active Substance: AZATHIOPRINE
     Dosage: 50 MG, ONCE DAILY (FOR 2 MONTHS)
     Route: 048
  4. INFLECTRA [Suspect]
     Active Substance: INFLIXIMAB-DYYB
     Indication: CROHN^S DISEASE
     Dosage: 400 MG, EVERY 0, 2, 6 AND THEN EVERY 8 WEEKS
     Route: 042
     Dates: start: 20190315
  5. INFLECTRA [Suspect]
     Active Substance: INFLIXIMAB-DYYB
     Dosage: 400 MG, EVERY 0, 2, 6 AND THEN EVERY 8 WEEKS
     Route: 042
     Dates: start: 20190330
  6. INFLECTRA [Suspect]
     Active Substance: INFLIXIMAB-DYYB
     Dosage: 400 MG, EVERY 0, 2, 6 AND THEN EVERY 8 WEEKS
     Route: 042
     Dates: start: 20190330
  7. INFLECTRA [Suspect]
     Active Substance: INFLIXIMAB-DYYB
     Dosage: 400 MG, EVERY 0, 2, 6 AND THEN EVERY 8 WEEKS
     Route: 042
     Dates: start: 20190817
  8. PREDNISONE. [Concomitant]
     Active Substance: PREDNISONE
     Dosage: 15 MG, 1X/DAY (TAPERING)
     Route: 048
  9. METHYLPREDNISOLONE. [Concomitant]
     Active Substance: METHYLPREDNISOLONE
     Dosage: 30 MG, 2X/DAY (EVERY 12 HOURS)
     Route: 042

REACTIONS (20)
  - Vomiting [Unknown]
  - Arthralgia [Unknown]
  - Bone pain [Unknown]
  - Inflammation [Unknown]
  - Productive cough [Unknown]
  - Scar [Unknown]
  - Fistula [Unknown]
  - Intestinal perforation [Unknown]
  - Colitis [Unknown]
  - Back pain [Unknown]
  - Hypoaesthesia [Unknown]
  - Infusion site pain [Unknown]
  - Malaise [Unknown]
  - Impaired driving ability [Unknown]
  - Condition aggravated [Unknown]
  - Swelling face [Unknown]
  - Nausea [Unknown]
  - Abdominal pain [Unknown]
  - Clostridium difficile infection [Unknown]
  - Oropharyngeal pain [Unknown]

NARRATIVE: CASE EVENT DATE: 20190427
